FAERS Safety Report 7576722-0 (Version None)
Quarter: 2011Q2

REPORT INFORMATION
  Report Type: 
  Country: None (occurrence: None)
  Receive Date: 20110628
  Receipt Date: 20110620
  Transmission Date: 20111010
  Serious: Yes (Death)
  Sender: FDA-Public Use
  Company Number: JP-BAYER-200912376BYL

PATIENT
  Age: 84 Year
  Sex: Male
  Weight: 53 kg

DRUGS (8)
  1. ADALAT CC [Concomitant]
     Dosage: 1 DF (DAILY DOSE), , ORAL
     Route: 048
     Dates: start: 20090707, end: 20090709
  2. SODIUM POLYSTYRENE SULFONATE [Concomitant]
     Dosage: 2 DF (DAILY DOSE), , ORAL
     Route: 048
     Dates: start: 20090421, end: 20090709
  3. ADONA [Concomitant]
     Dosage: 30 MG (DAILY DOSE), , ORAL
     Route: 048
     Dates: start: 20080930
  4. NEXAVAR [Suspect]
     Dosage: 400 MG (DAILY DOSE), BID, ORAL
     Route: 048
     Dates: start: 20090616, end: 20090709
  5. MAGMITT [Concomitant]
     Dosage: 3 DF (DAILY DOSE), , ORAL
     Route: 048
     Dates: start: 20090421, end: 20090709
  6. NEXAVAR [Suspect]
     Indication: RENAL CELL CARCINOMA STAGE I
     Route: 048
     Dates: start: 20080930, end: 20081014
  7. ADALAT CC [Concomitant]
     Dosage: 20 MG (DAILY DOSE), , ORAL
     Route: 048
     Dates: start: 20080930
  8. PURSENNID [Concomitant]
     Dosage: 2 DF (DAILY DOSE), , ORAL
     Route: 048
     Dates: start: 20090421, end: 20090623

REACTIONS (6)
  - PALMAR-PLANTAR ERYTHRODYSAESTHESIA SYNDROME [None]
  - HYPERAMYLASAEMIA [None]
  - HEPATIC FUNCTION ABNORMAL [None]
  - HYPERTENSION [None]
  - RASH [None]
  - AORTIC DISSECTION [None]
